FAERS Safety Report 12366069 (Version 1)
Quarter: 2016Q2

REPORT INFORMATION
  Report Type: Spontaneous
  Country: CA (occurrence: CA)
  Receive Date: 20160513
  Receipt Date: 20160513
  Transmission Date: 20160815
  Serious: Yes (Hospitalization)
  Sender: FDA-Public Use
  Company Number: CA-009507513-1605CAN006935

PATIENT
  Age: 70 Year
  Sex: Female

DRUGS (2)
  1. ORGARAN [Suspect]
     Active Substance: DANAPAROID SODIUM
     Indication: PRODUCT USED FOR UNKNOWN INDICATION
     Dosage: 750 ANTI-XA UNIT / AMP 1250 UNIT / ML (2500 IU, 1 IN 1 D)
     Route: 042
  2. HEPARIN SODIUM. [Concomitant]
     Active Substance: HEPARIN SODIUM
     Indication: PRODUCT USED FOR UNKNOWN INDICATION
     Route: 042

REACTIONS (2)
  - Gastric haemorrhage [Recovered/Resolved]
  - Haemoglobin decreased [Recovered/Resolved]
